FAERS Safety Report 6639084-9 (Version None)
Quarter: 2010Q1

REPORT INFORMATION
  Report Type: 
  Country: None (occurrence: None)
  Receive Date: 20100317
  Receipt Date: 20090918
  Transmission Date: 20100710
  Serious: Yes (Other)
  Sender: FDA-Public Use
  Company Number: AU-SANOFI-AVENTIS-200920740GDDC

PATIENT
  Age: 72 Year
  Sex: Female

DRUGS (6)
  1. LEFLUNOMIDE [Suspect]
     Indication: RHEUMATOID ARTHRITIS
     Route: 048
     Dates: start: 20080730
  2. METHOTREXATE [Concomitant]
     Dosage: DOSE AS USED: UNK
  3. PREDNISONE [Concomitant]
     Dosage: DOSE AS USED: UNK
  4. CALCIUM [Concomitant]
     Dosage: DOSE AS USED: UNK
  5. FOLIC ACID [Concomitant]
     Dosage: DOSE AS USED: UNK
  6. HORMONES AND RELATED AGENTS [Concomitant]
     Dosage: DOSE AS USED: UNK

REACTIONS (2)
  - ATRIAL FIBRILLATION [None]
  - LIVER FUNCTION TEST ABNORMAL [None]
